FAERS Safety Report 20140835 (Version 1)
Quarter: 2021Q4

REPORT INFORMATION
  Report Type: Spontaneous
  Country: US (occurrence: US)
  Receive Date: 20211202
  Receipt Date: 20211202
  Transmission Date: 20220303
  Serious: Yes (Other)
  Sender: FDA-Public Use
  Company Number: US-PFIZER INC-202101639443

PATIENT
  Age: 52 Year
  Sex: Female
  Weight: 102.06 kg

DRUGS (5)
  1. PREGABALIN [Suspect]
     Active Substance: PREGABALIN
     Dosage: 300 MG, DAILY (2 150 MG)
     Dates: start: 202103
  2. PREGABALIN [Suspect]
     Active Substance: PREGABALIN
     Dosage: 225 MG, 2X/DAY
     Dates: start: 20211116
  3. OMEPRAZOLE [Concomitant]
     Active Substance: OMEPRAZOLE
     Indication: Gastrooesophageal reflux disease
     Dosage: 40 MG, 1X/DAY
  4. FLUOXETINE [Concomitant]
     Active Substance: FLUOXETINE HYDROCHLORIDE
     Indication: Anxiety
     Dosage: 20 MG, 1X/DAY
  5. HYDROCHLOROTHIAZIDE\LISINOPRIL [Concomitant]
     Active Substance: HYDROCHLOROTHIAZIDE\LISINOPRIL
     Indication: Blood pressure abnormal
     Dosage: 10-12.5, 1X/DAY

REACTIONS (3)
  - Choking [Recovered/Resolved]
  - Vomiting [Recovered/Resolved]
  - Fatigue [Recovered/Resolved]

NARRATIVE: CASE EVENT DATE: 20211101
